FAERS Safety Report 10714146 (Version 1)
Quarter: 2015Q1

REPORT INFORMATION
  Report Type: Spontaneous
  Country: UA (occurrence: UA)
  Receive Date: 20150115
  Receipt Date: 20150115
  Transmission Date: 20150721
  Serious: Yes (Death)
  Sender: FDA-Public Use
  Company Number: UA-BAYER-2015-000732

PATIENT
  Age: 26 Year
  Sex: Female

DRUGS (8)
  1. ANALGIN [Suspect]
     Active Substance: METAMIZOLE SODIUM
     Dosage: 1 ML, ONCE AT 18:00H
     Route: 030
     Dates: start: 20141205, end: 20141205
  2. DIPHENHYDRAMINE HYDROCHLORIDE. [Suspect]
     Active Substance: DIPHENHYDRAMINE HYDROCHLORIDE
     Dosage: 1 ML, ONCE AT 10:00H
     Route: 030
     Dates: start: 20141205, end: 20141205
  3. ANALGIN [Suspect]
     Active Substance: METAMIZOLE SODIUM
     Dosage: 1 ML, ONCE AT 10:00H
     Route: 030
     Dates: start: 20141205, end: 20141205
  4. DIPHENHYDRAMINE HYDROCHLORIDE. [Suspect]
     Active Substance: DIPHENHYDRAMINE HYDROCHLORIDE
     Dosage: 1 ML, ONCE AT 18:00H
     Route: 030
     Dates: start: 20141205, end: 20141205
  5. METAMIZOLE SODIUM [Suspect]
     Active Substance: METAMIZOLE SODIUM
     Dosage: 2 DF, ONCE AT 18:00
     Route: 048
     Dates: start: 20141205, end: 20141205
  6. ACETYLSALICYLIC ACID (} 100 MG) [Suspect]
     Active Substance: ASPIRIN
     Dosage: 1 DF, ONCE
     Route: 048
     Dates: start: 20141205, end: 20141205
  7. METAMIZOLE SODIUM [Suspect]
     Active Substance: METAMIZOLE SODIUM
     Dosage: 2 DF, ONCE AT 10:00
     Route: 048
     Dates: start: 20141205, end: 20141205
  8. LIDOCAINE. [Suspect]
     Active Substance: LIDOCAINE
     Dosage: 2 ML, ONCE
     Route: 030
     Dates: start: 20141205, end: 20141205

REACTIONS (2)
  - Multi-organ failure [Fatal]
  - Disseminated intravascular coagulation [Fatal]

NARRATIVE: CASE EVENT DATE: 20141205
